FAERS Safety Report 7334869-8 (Version None)
Quarter: 2011Q1

REPORT INFORMATION
  Report Type: 
  Country: None (occurrence: None)
  Receive Date: 20110307
  Receipt Date: 20110222
  Transmission Date: 20110831
  Serious: Yes (Hospitalization)
  Sender: FDA-Public Use
  Company Number: US-CELGENEUS-163-21880-11022573

PATIENT
  Age: 84 Year
  Sex: Female
  Weight: 76.4 kg

DRUGS (14)
  1. LEXAPRO [Suspect]
     Route: 065
  2. COMPAZINE [Suspect]
     Route: 065
  3. REVLIMID [Suspect]
     Dosage: 25 MILLIGRAM
     Route: 048
     Dates: start: 20110209, end: 20110209
  4. FLEXERIL [Suspect]
     Route: 065
  5. ANTIVIRAL [Concomitant]
     Indication: PROPHYLAXIS
     Route: 065
  6. DEXAMETHASONE [Suspect]
     Indication: MULTIPLE MYELOMA
     Dosage: 40 MILLIGRAM
     Route: 048
     Dates: start: 20100714
  7. DILAUDID [Suspect]
     Route: 065
  8. XANAX [Suspect]
     Route: 065
  9. REVLIMID [Suspect]
     Indication: MULTIPLE MYELOMA
     Dosage: 25 MILLIGRAM
     Route: 048
     Dates: start: 20100714
  10. ASPIRIN [Concomitant]
     Dosage: 325 MILLIGRAM
     Route: 048
  11. DEXAMETHASONE [Suspect]
     Dosage: 40 MILLIGRAM
     Route: 048
     Dates: start: 20110209, end: 20110209
  12. HYDROCODONE [Suspect]
     Route: 065
  13. PROTONIX [Suspect]
     Route: 065
  14. RIVASTIGMINE [Suspect]
     Route: 065

REACTIONS (4)
  - COGNITIVE DISORDER [None]
  - ENCEPHALOPATHY [None]
  - NAUSEA [None]
  - MYALGIA [None]
